FAERS Safety Report 9084411 (Version 1)
Quarter: 2013Q1

REPORT INFORMATION
  Report Type: Report from Study
  Country: US (occurrence: US)
  Receive Date: 20130131
  Receipt Date: 20130131
  Transmission Date: 20140127
  Serious: Yes (Other)
  Sender: FDA-Public Use
  Company Number: US-ABBOTT-12P-163-0993979-00

PATIENT
  Age: 26 None
  Sex: Male
  Weight: 118.04 kg

DRUGS (8)
  1. HUMIRA [Suspect]
     Indication: PSORIATIC ARTHROPATHY
     Dates: start: 201203, end: 201206
  2. HUMIRA [Suspect]
     Dates: start: 20120815
  3. MELOXICAM [Concomitant]
     Indication: PSORIATIC ARTHROPATHY
     Dosage: 15MG DAILY
  4. BUTALBITAL [Concomitant]
     Indication: HEADACHE
  5. TYLENOL [Concomitant]
     Indication: HEADACHE
     Dosage: 500MG AS NEEDED
  6. TYLENOL [Concomitant]
     Indication: ARTHRALGIA
  7. BUALPITAL [Concomitant]
     Indication: PRODUCT USED FOR UNKNOWN INDICATION
  8. ES TYLENOL [Concomitant]
     Indication: PRODUCT USED FOR UNKNOWN INDICATION
     Dosage: 1 IN 1 D, AS REQUIRED
     Route: 048

REACTIONS (8)
  - Hand fracture [Recovered/Resolved]
  - Pain in extremity [Recovering/Resolving]
  - Headache [Not Recovered/Not Resolved]
  - Injection site pain [Unknown]
  - Drug dose omission [Unknown]
  - Wrong technique in drug usage process [Unknown]
  - Injection site pain [Not Recovered/Not Resolved]
  - Arthralgia [Unknown]
